FAERS Safety Report 19593746 (Version 1)
Quarter: 2021Q3

REPORT INFORMATION
  Report Type: Other
  Country: DE (occurrence: DE)
  Receive Date: 20210722
  Receipt Date: 20210722
  Transmission Date: 20211014
  Serious: Yes (Other)
  Sender: FDA-Public Use
  Company Number: DE-MACLEODS PHARMA UK LTD-MAC2021031945

PATIENT

DRUGS (7)
  1. QUETIAPINE. [Interacting]
     Active Substance: QUETIAPINE
     Dosage: 400 MILLIGRAM, QD, B.A.W.
     Route: 065
     Dates: start: 20200918
  2. ATOMOXETINE. [Interacting]
     Active Substance: ATOMOXETINE HYDROCHLORIDE
     Indication: PRODUCT USED FOR UNKNOWN INDICATION
     Dosage: 40 MILLIGRAM, QD, ATOMOXETINE HYDROCHLORIDE
     Route: 065
     Dates: start: 20200619, end: 20200623
  3. QUETIAPINE. [Suspect]
     Active Substance: QUETIAPINE
     Indication: PRODUCT USED FOR UNKNOWN INDICATION
     Dosage: 100 MILLIGRAM, QD
     Route: 065
     Dates: start: 20200622, end: 20200624
  4. ATOMOXETINE. [Interacting]
     Active Substance: ATOMOXETINE HYDROCHLORIDE
     Dosage: 60 MILLIGRAM, QD, ATOMOXETINE HYDROCHLORIDE
     Route: 065
     Dates: start: 20200624, end: 20200624
  5. ATOMOXETINE. [Interacting]
     Active Substance: ATOMOXETINE HYDROCHLORIDE
     Dosage: 65 MILLIGRAM, QD, FROM HERE OCCURRENCE OF THE ADR, ATOMOXETINE HYDROCHLORIDE
     Route: 065
     Dates: start: 20200625, end: 20200910
  6. QUETIAPINE. [Interacting]
     Active Substance: QUETIAPINE
     Dosage: 300 MILLIGRAM, QD, FROM HERE OCCURRENCE OF THE ADR
     Route: 065
     Dates: start: 20200629, end: 20200917
  7. QUETIAPINE. [Interacting]
     Active Substance: QUETIAPINE
     Dosage: 200 MILLIGRAM, QD
     Route: 065
     Dates: start: 20200625, end: 20200628

REACTIONS (3)
  - Dysuria [Recovered/Resolved]
  - Pollakiuria [Recovered/Resolved]
  - Drug interaction [Unknown]

NARRATIVE: CASE EVENT DATE: 20200703
